FAERS Safety Report 17311406 (Version 1)
Quarter: 2020Q1

REPORT INFORMATION
  Report Type: Spontaneous
  Country: US (occurrence: US)
  Receive Date: 20200123
  Receipt Date: 20200123
  Transmission Date: 20200409
  Serious: No
  Sender: FDA-Public Use
  Company Number: US-ROCHE-2297520

PATIENT
  Sex: Female
  Weight: 105.33 kg

DRUGS (4)
  1. PLAQUENIL [Concomitant]
     Active Substance: HYDROXYCHLOROQUINE SULFATE
     Indication: MIXED CONNECTIVE TISSUE DISEASE
     Route: 048
  2. LEFLUNOMIDE. [Concomitant]
     Active Substance: LEFLUNOMIDE
     Indication: MIXED CONNECTIVE TISSUE DISEASE
     Route: 048
  3. RITUXAN [Suspect]
     Active Substance: RITUXIMAB
     Indication: MIXED CONNECTIVE TISSUE DISEASE
     Dosage: 2 PART INFUSION (2 WEEKS APART), EVERY 6 MONTHS?THE MOST RECENT DOSE OF RTIUXAN INFUSION WAS AUG/201
     Route: 042
  4. METHOTREXATE. [Concomitant]
     Active Substance: METHOTREXATE
     Indication: MIXED CONNECTIVE TISSUE DISEASE
     Route: 048

REACTIONS (3)
  - Pain [Not Recovered/Not Resolved]
  - Intentional product use issue [Unknown]
  - Off label use [Unknown]
